FAERS Safety Report 6775282-1 (Version None)
Quarter: 2010Q2

REPORT INFORMATION
  Report Type: 
  Country: None (occurrence: None)
  Receive Date: 20100615
  Receipt Date: 20100615
  Transmission Date: 20101027
  Serious: Yes (Other)
  Sender: FDA-Public Use
  Company Number: None

PATIENT
  Age: 45 Year
  Sex: Female
  Weight: 80.9 kg

DRUGS (2)
  1. GEMCITABINE (GEMZAR) [Suspect]
     Indication: OVARIAN CANCER METASTATIC
     Dosage: 1840 MG (1000MG/M2) WEEKLY IV
     Route: 042
     Dates: start: 20100519
  2. GEMCITABINE (GEMZAR) [Suspect]
     Indication: OVARIAN CANCER METASTATIC
     Dosage: 1840 MG (1000MG/M2) WEEKLY IV
     Route: 042
     Dates: start: 20100526

REACTIONS (2)
  - OEDEMA PERIPHERAL [None]
  - RASH ERYTHEMATOUS [None]
